FAERS Safety Report 5843249-3 (Version None)
Quarter: 2008Q3

REPORT INFORMATION
  Report Type: 
  Country: None (occurrence: None)
  Receive Date: 20080813
  Receipt Date: 20080807
  Transmission Date: 20090109
  Serious: Yes (Life-Threatening, Hospitalization)
  Sender: FDA-Public Use
  Company Number: PHEH2008US06859

PATIENT
  Sex: Female
  Weight: 49.433 kg

DRUGS (8)
  1. RECLAST [Suspect]
     Indication: OSTEOPOROSIS
     Dosage: 5MG ONCE A YEAR
     Dates: start: 20080717, end: 20080717
  2. CALCIUM [Suspect]
     Dosage: OVERDOSE
  3. ANAFRANIL [Concomitant]
     Dosage: 75 MG, QD
     Route: 048
  4. TOPAMAX [Concomitant]
     Dosage: 25 MG, QD
     Route: 048
  5. ZETIA [Concomitant]
     Dosage: 10 MG, QHS
     Route: 048
  6. PREMARIN [Concomitant]
     Dosage: 0.3 MG, QD
     Route: 048
  7. AMBIEN [Concomitant]
     Dosage: UNK
     Route: 048
  8. MAXALT                                  /USA/ [Concomitant]
     Dosage: UNK
     Route: 048

REACTIONS (8)
  - ALANINE AMINOTRANSFERASE INCREASED [None]
  - ASPARTATE AMINOTRANSFERASE INCREASED [None]
  - BLOOD CREATININE INCREASED [None]
  - BLOOD UREA INCREASED [None]
  - DEHYDRATION [None]
  - GLOMERULAR FILTRATION RATE DECREASED [None]
  - OVERDOSE [None]
  - RENAL FAILURE ACUTE [None]
